FAERS Safety Report 14034180 (Version 1)
Quarter: 2017Q4

REPORT INFORMATION
  Report Type: Spontaneous
  Country: US (occurrence: US)
  Receive Date: 20171003
  Receipt Date: 20171003
  Transmission Date: 20180321
  Serious: Yes (Other)
  Sender: FDA-Public Use
  Company Number: None

PATIENT
  Age: 38 Year
  Sex: Female
  Weight: 78 kg

DRUGS (2)
  1. TOPIRAMATE. [Concomitant]
     Active Substance: TOPIRAMATE
  2. SUMATRIPTAN SUCC 100 MG TABLETS [Suspect]
     Active Substance: SUMATRIPTAN SUCCINATE
     Indication: MIGRAINE
     Dosage: ?          QUANTITY:1 CAPSULE(S);?
     Route: 048
     Dates: start: 20171001, end: 20171001

REACTIONS (7)
  - Vomiting [None]
  - Nausea [None]
  - Throat tightness [None]
  - Dizziness [None]
  - Blood pressure increased [None]
  - Heart rate irregular [None]
  - Chest discomfort [None]

NARRATIVE: CASE EVENT DATE: 20171001
